FAERS Safety Report 6243225-5 (Version None)
Quarter: 2009Q2

REPORT INFORMATION
  Report Type: 
  Country: None (occurrence: None)
  Receive Date: 20090624
  Receipt Date: 20090618
  Transmission Date: 20091009
  Serious: Yes (Hospitalization, Other)
  Sender: FDA-Public Use
  Company Number: AU-B.I. PHARMACEUTICALS,INC./RIDGEFIELD-2009-AU-00284AU

PATIENT
  Sex: Female

DRUGS (1)
  1. MOBIC [Suspect]

REACTIONS (2)
  - HOSPITALISATION [None]
  - MYOCARDIAL ISCHAEMIA [None]
